FAERS Safety Report 10055528 (Version 3)
Quarter: 2014Q3

REPORT INFORMATION
  Report Type: Report from Study
  Country: US (occurrence: US)
  Receive Date: 20140403
  Receipt Date: 20140707
  Transmission Date: 20150326
  Serious: Yes (Hospitalization, Other)
  Sender: FDA-Public Use
  Company Number: US-BRISTOL-MYERS SQUIBB COMPANY-19201540

PATIENT
  Age: 54 Year
  Sex: Male
  Weight: 106.5 kg

DRUGS (3)
  1. IPILIMUMAB [Suspect]
     Active Substance: IPILIMUMAB
     Indication: MALIGNANT MELANOMA
     Dosage: RECENT DOSE:17-MAY-2013;TOTAL DOSE:1125MG;ON WEEK:24,36,48,60
     Route: 042
     Dates: start: 20121130
  2. LEVOTHROID [Concomitant]
     Active Substance: LEVOTHYROXINE SODIUM
  3. GABAPENTIN. [Concomitant]
     Active Substance: GABAPENTIN

REACTIONS (5)
  - Peripheral sensory neuropathy [Recovering/Resolving]
  - Vomiting [Recovering/Resolving]
  - Pulmonary mass [Unknown]
  - Peripheral motor neuropathy [Recovering/Resolving]
  - Dehydration [Recovering/Resolving]

NARRATIVE: CASE EVENT DATE: 20130712
